FAERS Safety Report 17152955 (Version 1)
Quarter: 2019Q4

REPORT INFORMATION
  Report Type: Spontaneous
  Country: IL (occurrence: IL)
  Receive Date: 20191213
  Receipt Date: 20191213
  Transmission Date: 20200122
  Serious: Yes (Other)
  Sender: FDA-Public Use
  Company Number: IL-JNJFOC-20191211242

PATIENT
  Age: 23 Year
  Sex: Female

DRUGS (3)
  1. CONCERTA [Suspect]
     Active Substance: METHYLPHENIDATE HYDROCHLORIDE
     Dosage: AT THE AGE OF 37, BEGAN USING IT DAILY
     Route: 065
  2. RITALIN [Suspect]
     Active Substance: METHYLPHENIDATE HYDROCHLORIDE
     Indication: ATTENTION DEFICIT/HYPERACTIVITY DISORDER
     Dosage: AT THE AGE OF 23 YEARS, STARTED TAKING THE INSTANT RELEASE FORMULATION (RITALIN)
     Route: 065
  3. CONCERTA [Suspect]
     Active Substance: METHYLPHENIDATE HYDROCHLORIDE
     Indication: ATTENTION DEFICIT/HYPERACTIVITY DISORDER
     Dosage: AT THE AGE OF 26 YEARS, SHE BEGAN ADDING THE EXTENDED RELEASE FORM OF METHYLPHENIDATE (CONCERTA)
     Route: 065

REACTIONS (3)
  - Systemic scleroderma [Unknown]
  - Pulmonary hypertension [Unknown]
  - Raynaud^s phenomenon [Recovering/Resolving]
